FAERS Safety Report 19051116 (Version 1)
Quarter: 2021Q1

REPORT INFORMATION
  Report Type: Spontaneous
  Country: US (occurrence: US)
  Receive Date: 20210324
  Receipt Date: 20210324
  Transmission Date: 20210420
  Serious: No
  Sender: FDA-Public Use
  Company Number: US-ALLERGAN-2049507US

PATIENT
  Age: 0 Day
  Sex: Male
  Weight: 2.81 kg

DRUGS (1)
  1. CANASA [Suspect]
     Active Substance: MESALAMINE
     Indication: MATERNAL EXPOSURE DURING BREAST FEEDING
     Dosage: 1000 MG ONCE WEEKLY INSTEAD OF 1000
     Route: 063
     Dates: start: 2019, end: 2020

REACTIONS (2)
  - Maternal exposure during breast feeding [Unknown]
  - Low birth weight baby [Recovered/Resolved]

NARRATIVE: CASE EVENT DATE: 20191025
